FAERS Safety Report 14983973 (Version 2)
Quarter: 2018Q4

REPORT INFORMATION
  Report Type: Report from Study
  Country: EG (occurrence: EG)
  Receive Date: 20180607
  Receipt Date: 20181220
  Transmission Date: 20190204
  Serious: Yes (Hospitalization)
  Sender: FDA-Public Use
  Company Number: EG-SA-2018SA144726

PATIENT
  Age: 13 Year
  Sex: Male

DRUGS (2)
  1. INSULIN GLARGINE [Suspect]
     Active Substance: INSULIN GLARGINE
     Indication: TYPE 1 DIABETES MELLITUS
     Dosage: 15 IU, QD
     Route: 058
     Dates: start: 201608
  2. ACTRAPID [Concomitant]
     Active Substance: INSULIN HUMAN
     Dosage: 12 IU, WITH EACH MEAL

REACTIONS (8)
  - Blood pH decreased [Recovered/Resolved]
  - Abdominal pain upper [Unknown]
  - Hyperglycaemia [Unknown]
  - Inadequate diet [Unknown]
  - Hyperphagia [Unknown]
  - Urine ketone body [Recovered/Resolved]
  - Vomiting [Unknown]
  - Dizziness [Unknown]

NARRATIVE: CASE EVENT DATE: 201802
